FAERS Safety Report 13017094 (Version 1)
Quarter: 2016Q4

REPORT INFORMATION
  Report Type: Spontaneous
  Country: US (occurrence: US)
  Receive Date: 20161212
  Receipt Date: 20161212
  Transmission Date: 20170207
  Serious: No
  Sender: FDA-Public Use
  Company Number: US-TEVA-686177USA

PATIENT
  Sex: Male

DRUGS (1)
  1. DUTASTERIDE. [Suspect]
     Active Substance: DUTASTERIDE
     Route: 065

REACTIONS (2)
  - Sperm concentration decreased [Unknown]
  - Product odour abnormal [Unknown]
